FAERS Safety Report 23399029 (Version 1)
Quarter: 2024Q1

REPORT INFORMATION
  Report Type: Report from Study
  Country: US (occurrence: US)
  Receive Date: 20240112
  Receipt Date: 20240112
  Transmission Date: 20240410
  Serious: Yes (Death)
  Sender: FDA-Public Use
  Company Number: US-ABBVIE-5583487

PATIENT
  Sex: Male
  Weight: 72.574 kg

DRUGS (1)
  1. CREON [Suspect]
     Active Substance: PANCRELIPASE AMYLASE\PANCRELIPASE LIPASE\PANCRELIPASE PROTEASE
     Indication: Pancreatic carcinoma
     Dosage: FORM STRENGTH: 36000 MILLIGRAM,  3 TIMES PER DAY WITH MEALS
     Route: 048

REACTIONS (3)
  - Respiratory arrest [Fatal]
  - Pneumonia [Fatal]
  - Pancreatic carcinoma metastatic [Fatal]
